FAERS Safety Report 11296952 (Version 1)
Quarter: 2015Q3

REPORT INFORMATION
  Report Type: Spontaneous
  Country: US (occurrence: US)
  Receive Date: 20150722
  Receipt Date: 20150722
  Transmission Date: 20151125
  Serious: Yes (Other)
  Sender: FDA-Public Use
  Company Number: US-ELI_LILLY_AND_COMPANY-US201010002079

PATIENT
  Age: 70 Year
  Sex: Female

DRUGS (3)
  1. EFFIENT [Suspect]
     Active Substance: PRASUGREL HYDROCHLORIDE
     Indication: PERCUTANEOUS CORONARY INTERVENTION
     Dosage: 60 UNK, UNKNOWN, LOADING DOSE
     Route: 065
  2. EFFIENT [Suspect]
     Active Substance: PRASUGREL HYDROCHLORIDE
     Dosage: 10 UNK, UNKNOWN, MAINTENACE
     Route: 065
  3. REOPRO [Concomitant]
     Active Substance: ABCIXIMAB
     Dosage: UNK, UNKNOWN
     Route: 065

REACTIONS (1)
  - Pulmonary haemorrhage [Recovered/Resolved]
